FAERS Safety Report 7185561-4 (Version None)
Quarter: 2010Q4

REPORT INFORMATION
  Report Type: 
  Country: None (occurrence: None)
  Receive Date: 20101222
  Receipt Date: 20100606
  Transmission Date: 20110411
  Serious: No
  Sender: FDA-Public Use
  Company Number: US-AMGEN-TCS416684

PATIENT

DRUGS (1)
  1. ENBREL [Suspect]
     Indication: RHEUMATOID ARTHRITIS
     Dosage: 50 MG, QWK
     Route: 058
     Dates: start: 20100429, end: 20100520

REACTIONS (8)
  - CHEST PAIN [None]
  - CHILLS [None]
  - DRY EYE [None]
  - ERYTHEMA [None]
  - FEELING HOT [None]
  - HYPERCHLORHYDRIA [None]
  - HYPOAESTHESIA FACIAL [None]
  - PARAESTHESIA [None]
